FAERS Safety Report 18118670 (Version 5)
Quarter: 2020Q4

REPORT INFORMATION
  Report Type: Spontaneous
  Country: US (occurrence: US)
  Receive Date: 20200806
  Receipt Date: 20201109
  Transmission Date: 20210113
  Serious: No
  Sender: FDA-Public Use
  Company Number: US-PFIZER INC-2018522375

PATIENT
  Age: 44 Year
  Sex: Female
  Weight: 97.51 kg

DRUGS (3)
  1. LYRICA [Suspect]
     Active Substance: PREGABALIN
     Indication: BACK PAIN
     Dosage: 150 MG, 3X/DAY, [TAKE 1 CAPSULE (150 MG TOTAL) BY MOUTH 3 (THREE) TIMES DAILY]
     Route: 048
  2. LYRICA [Suspect]
     Active Substance: PREGABALIN
     Indication: LUMBAR RADICULOPATHY
  3. LYRICA [Suspect]
     Active Substance: PREGABALIN
     Indication: FIBROMYALGIA
     Dosage: 200 MG, 2X/DAY
     Dates: start: 2019

REACTIONS (3)
  - Nervousness [Unknown]
  - Tremor [Unknown]
  - Loss of personal independence in daily activities [Unknown]
